FAERS Safety Report 18111197 (Version 1)
Quarter: 2020Q3

REPORT INFORMATION
  Report Type: Spontaneous
  Country: IT (occurrence: IT)
  Receive Date: 20200804
  Receipt Date: 20200804
  Transmission Date: 20201103
  Serious: Yes (Other)
  Sender: FDA-Public Use
  Company Number: NVSC2020IT216874

PATIENT
  Age: 39 Year
  Sex: Female

DRUGS (2)
  1. HEPARIN [Interacting]
     Active Substance: HEPARIN SODIUM
     Indication: ANTICOAGULANT THERAPY
     Dosage: UNK
     Route: 042
  2. ACETYLSALICYLIC ACID [Suspect]
     Active Substance: ASPIRIN
     Indication: ANTICOAGULANT THERAPY
     Dosage: UNK
     Route: 065

REACTIONS (3)
  - Haematoma [Unknown]
  - Labelled drug-drug interaction medication error [Unknown]
  - Graft haemorrhage [Unknown]
